FAERS Safety Report 15119825 (Version 1)
Quarter: 2018Q3

REPORT INFORMATION
  Report Type: Spontaneous
  Country: US (occurrence: US)
  Receive Date: 20180709
  Receipt Date: 20180709
  Transmission Date: 20181010
  Serious: No
  Sender: FDA-Public Use
  Company Number: US-BAYER-2018-122171

PATIENT
  Age: 86 Year
  Sex: Female
  Weight: 57 kg

DRUGS (11)
  1. REFRESH TEARS [Concomitant]
     Active Substance: CARBOXYMETHYLCELLULOSE SODIUM
     Dosage: UNK
  2. LISINOPRIL. [Concomitant]
     Active Substance: LISINOPRIL
     Dosage: UNK
  3. METFORMIN [Concomitant]
     Active Substance: METFORMIN HYDROCHLORIDE
  4. MIRALAX [Suspect]
     Active Substance: POLYETHYLENE GLYCOL 3350
     Indication: CONSTIPATION
  5. PROBIOTICA [Concomitant]
     Active Substance: PROBIOTICS NOS
     Dosage: UNK
  6. FEXOFENADINE HYDROCHLORIDE. [Concomitant]
     Active Substance: FEXOFENADINE HYDROCHLORIDE
  7. LOVASTATIN. [Concomitant]
     Active Substance: LOVASTATIN
     Dosage: UNK
  8. MIRALAX [Suspect]
     Active Substance: POLYETHYLENE GLYCOL 3350
     Indication: GASTROINTESTINAL DISORDER
     Dosage: ONE HEAPING TABLESPOON
     Route: 048
     Dates: start: 20180624
  9. ANASTROZOLE. [Concomitant]
     Active Substance: ANASTROZOLE
  10. SINGULAIR [Concomitant]
     Active Substance: MONTELUKAST SODIUM
  11. ARIMIDEX [Concomitant]
     Active Substance: ANASTROZOLE

REACTIONS (3)
  - Product prescribing issue [Unknown]
  - Incorrect dose administered [Unknown]
  - Circumstance or information capable of leading to medication error [Unknown]

NARRATIVE: CASE EVENT DATE: 201806
